FAERS Safety Report 6733977-X (Version None)
Quarter: 2010Q2

REPORT INFORMATION
  Report Type: 
  Country: None (occurrence: None)
  Receive Date: 20100520
  Receipt Date: 20100511
  Transmission Date: 20101027
  Serious: Yes (Hospitalization)
  Sender: FDA-Public Use
  Company Number: US-SANOFI-AVENTIS-2010SA027121

PATIENT
  Age: 67 Year
  Sex: Male

DRUGS (2)
  1. PLAVIX [Suspect]
     Route: 048
  2. PLAVIX [Suspect]

REACTIONS (2)
  - ANGINA UNSTABLE [None]
  - CORONARY ARTERY RESTENOSIS [None]
